FAERS Safety Report 7713953-0 (Version None)
Quarter: 2011Q3

REPORT INFORMATION
  Report Type: 
  Country: None (occurrence: None)
  Receive Date: 20110826
  Receipt Date: 20110822
  Transmission Date: 20111222
  Serious: Yes (Death, Life-Threatening)
  Sender: FDA-Public Use
  Company Number: JP-ASTRAZENECA-2010SE49243

PATIENT
  Age: 22521 Day
  Sex: Female

DRUGS (10)
  1. BETAMETHASONE [Concomitant]
     Indication: CACHEXIA
     Route: 065
     Dates: start: 20100630, end: 20100720
  2. FAMOTIDINE [Concomitant]
     Indication: PROPHYLAXIS AGAINST GASTROINTESTINAL ULCER
     Route: 042
     Dates: start: 20100630, end: 20100703
  3. HALOPERIDOL [Concomitant]
     Indication: SEDATION
     Route: 065
     Dates: start: 20100802, end: 20100802
  4. IRESSA [Suspect]
     Indication: LUNG ADENOCARCINOMA
     Route: 048
     Dates: start: 20100709, end: 20100725
  5. BETAMETHASONE [Concomitant]
     Route: 048
     Dates: start: 20100721, end: 20100731
  6. LANSOPRAZOLE [Concomitant]
     Indication: GASTROOESOPHAGEAL REFLUX DISEASE
     Route: 048
     Dates: start: 20100706, end: 20100731
  7. MORPHINE HYDROCHLORIDE HYDRATE [Concomitant]
     Indication: SEDATION
     Route: 042
     Dates: start: 20100802, end: 20100804
  8. LENDORMIN D [Concomitant]
     Indication: INSOMNIA
     Route: 048
     Dates: start: 20100705, end: 20100731
  9. NORVASC [Concomitant]
     Indication: HYPERTENSION
     Route: 048
     Dates: start: 20100706, end: 20100730
  10. SOLU-MEDROL [Concomitant]
     Indication: LUNG DISORDER
     Route: 041
     Dates: start: 20100726, end: 20100802

REACTIONS (3)
  - INTERSTITIAL LUNG DISEASE [None]
  - PNEUMOTHORAX [None]
  - DISEASE PROGRESSION [None]
